FAERS Safety Report 8622003-3 (Version None)
Quarter: 2012Q3

REPORT INFORMATION
  Report Type: 
  Country: None (occurrence: None)
  Receive Date: 20120823
  Receipt Date: 20120823
  Transmission Date: 20120928
  Serious: Yes (Disabling)
  Sender: FDA-Public Use
  Company Number: None

PATIENT
  Sex: Male
  Weight: 163.2949 kg

DRUGS (7)
  1. SAVELLA [Suspect]
     Dosage: 100 MG, PO
     Route: 048
     Dates: start: 20120515, end: 20120515
  2. SAVELLA [Suspect]
     Indication: SCIATICA
     Dosage: TITRATION PACK,, PO
     Route: 048
     Dates: start: 20120515, end: 20120515
  3. SAVELLA [Suspect]
     Indication: NEURALGIA
     Dosage: TITRATION PACK,, PO
     Route: 048
     Dates: start: 20120515, end: 20120515
  4. SAVELLA [Suspect]
     Indication: FIBROMYALGIA
     Dosage: TITRATION PACK,, PO
     Route: 048
     Dates: start: 20120515, end: 20120515
  5. SAVELLA [Suspect]
     Indication: SCIATICA
     Dosage: TITRATION PACK,, PO
     Route: 048
     Dates: start: 20120315, end: 20120515
  6. SAVELLA [Suspect]
     Indication: NEURALGIA
     Dosage: TITRATION PACK,, PO
     Route: 048
     Dates: start: 20120315, end: 20120515
  7. SAVELLA [Suspect]
     Indication: FIBROMYALGIA
     Dosage: TITRATION PACK,, PO
     Route: 048
     Dates: start: 20120315, end: 20120515

REACTIONS (4)
  - PAINFUL EJACULATION [None]
  - SEXUAL DYSFUNCTION [None]
  - TESTICULAR PAIN [None]
  - PROSTATIC PAIN [None]
